FAERS Safety Report 25917767 (Version 1)
Quarter: 2025Q4

REPORT INFORMATION
  Report Type: Spontaneous
  Country: US (occurrence: US)
  Receive Date: 20251014
  Receipt Date: 20251014
  Transmission Date: 20260118
  Serious: Yes (Other)
  Sender: COOPERSURGICAL
  Company Number: US-COOPERSURGICAL, INC.-2025CPS007211

PATIENT
  Age: 23 Year
  Sex: Female
  Weight: 79.365 kg

DRUGS (1)
  1. PARAGARD T 380A [Suspect]
     Active Substance: COPPER
     Indication: Contraception
     Dosage: UNK
     Dates: start: 20150427, end: 20221230

REACTIONS (18)
  - Infertility female [Not Recovered/Not Resolved]
  - Reproductive complication associated with device [Not Recovered/Not Resolved]
  - Surgery [Recovered/Resolved]
  - Device breakage [Recovered/Resolved]
  - Foreign body in reproductive tract [Recovered/Resolved]
  - Complication of device removal [Recovered/Resolved]
  - Sexual dysfunction [Unknown]
  - Emotional disorder [Unknown]
  - Dysuria [Unknown]
  - Pollakiuria [Unknown]
  - Urinary tract infection [Unknown]
  - Device dislocation [Recovered/Resolved]
  - Heavy menstrual bleeding [Recovered/Resolved]
  - Menstrual disorder [Unknown]
  - Vaginal discharge [Unknown]
  - Vulvovaginal discomfort [Unknown]
  - Vulvovaginal pruritus [Unknown]
  - Vulvovaginal mycotic infection [Unknown]

NARRATIVE: CASE EVENT DATE: 20150427
